FAERS Safety Report 9825991 (Version 1)
Quarter: 2014Q1

REPORT INFORMATION
  Report Type: Spontaneous
  Country: US (occurrence: US)
  Receive Date: 20140117
  Receipt Date: 20140117
  Transmission Date: 20141002
  Serious: No
  Sender: FDA-Public Use
  Company Number: US-BAYER-2014-007990

PATIENT
  Age: 83 Year
  Sex: Female
  Weight: 72.56 kg

DRUGS (2)
  1. ALEVE TABLET [Suspect]
     Indication: ANALGESIC THERAPY
     Dosage: 1 DF, BID
     Route: 048
  2. ATENOLOL [Concomitant]

REACTIONS (3)
  - Therapeutic response unexpected [Not Recovered/Not Resolved]
  - Drug ineffective [None]
  - Incorrect drug administration duration [None]
